FAERS Safety Report 21868419 (Version 1)
Quarter: 2023Q1

REPORT INFORMATION
  Report Type: Spontaneous
  Country: US (occurrence: US)
  Receive Date: 20230116
  Receipt Date: 20230116
  Transmission Date: 20230418
  Serious: Yes (Life-Threatening, Hospitalization, Other)
  Sender: FDA-Public Use
  Company Number: US-INGENUS PHARMACEUTICALS, LLC-2023INF000001

PATIENT
  Age: 66 Year
  Sex: Male

DRUGS (7)
  1. CYCLOPHOSPHAMIDE [Suspect]
     Active Substance: CYCLOPHOSPHAMIDE
     Indication: Ewing^s sarcoma
     Dosage: 600 MILLIGRAM
     Route: 065
     Dates: start: 20220725
  2. SECLIDEMSTAT [Suspect]
     Active Substance: SECLIDEMSTAT
     Indication: Ewing^s sarcoma
     Dosage: 900 MILLIGRAM, BID
     Route: 048
     Dates: start: 20220725, end: 20221012
  3. TOPOTECAN [Suspect]
     Active Substance: TOPOTECAN HYDROCHLORIDE
     Indication: Ewing^s sarcoma
     Dosage: 1.7 MILLIGRAM
     Route: 065
     Dates: start: 20220725
  4. SENNA [Concomitant]
     Active Substance: SENNA LEAF\SENNOSIDES\SENNOSIDES A AND B
     Indication: Constipation
     Dosage: 2 TABLETS AS NEEDED DAILY
     Route: 048
  5. OMEPRAZOLE [Concomitant]
     Active Substance: OMEPRAZOLE
     Indication: Dyspepsia
     Dosage: 40 MILLIGRAM, QD
     Route: 048
  6. ONDANSETRON [Concomitant]
     Active Substance: ONDANSETRON
     Indication: Nausea
     Dosage: 8 MILLIGRAM, PRN
     Route: 048
  7. CEFUROXIME [Concomitant]
     Active Substance: CEFUROXIME
     Indication: Urinary tract infection
     Dosage: 250 MILLIGRAM, BID
     Route: 048
     Dates: start: 20220928, end: 20220930

REACTIONS (9)
  - Hydronephrosis [Unknown]
  - Neurogenic bladder [Unknown]
  - Neutrophil count decreased [Recovered/Resolved]
  - White blood cell count decreased [Recovered/Resolved]
  - Enterococcal infection [Unknown]
  - Urinary tract infection bacterial [Unknown]
  - Pneumonia klebsiella [Unknown]
  - Febrile neutropenia [Recovered/Resolved]
  - Anaemia [Recovered/Resolved]

NARRATIVE: CASE EVENT DATE: 20221012
